FAERS Safety Report 4915700-4 (Version None)
Quarter: 2006Q1

REPORT INFORMATION
  Report Type: 
  Country: None (occurrence: None)
  Receive Date: 20060214
  Receipt Date: 20060203
  Transmission Date: 20060701
  Serious: Yes (Other)
  Sender: FDA-Public Use
  Company Number: 2006018081

PATIENT
  Age: 20 Year
  Sex: Female
  Weight: 49.8957 kg

DRUGS (2)
  1. VISINE EYE DROPS [Suspect]
     Dosage: 1 BOTTLE ONCE, ORAL
     Route: 048
     Dates: start: 20060203, end: 20060203
  2. ORAL (CONTRACEPTIVE NOS (ORAL CONTRACEPTIVE NOS) [Concomitant]

REACTIONS (4)
  - ABDOMINAL PAIN UPPER [None]
  - ACCIDENTAL EXPOSURE [None]
  - DIZZINESS [None]
  - MALAISE [None]
